FAERS Safety Report 5221866-1 (Version None)
Quarter: 2007Q1

REPORT INFORMATION
  Report Type: 
  Country: None (occurrence: None)
  Receive Date: 20070129
  Receipt Date: 20070116
  Transmission Date: 20070707
  Serious: Yes (Death, Hospitalization, Other)
  Sender: FDA-Public Use
  Company Number: AUWYE054308JAN07

PATIENT
  Sex: Male

DRUGS (11)
  1. ENBREL [Suspect]
     Indication: RHEUMATOID ARTHRITIS
     Route: 058
     Dates: start: 20040401, end: 20060617
  2. ATENOLOL [Concomitant]
     Route: 065
  3. ATROVENT FORTE [Concomitant]
     Route: 065
  4. IRBESARTAN - HYDROCHLOROTHIAZIDE [Concomitant]
     Dosage: 150/12.5MG, DOSE AND FREQUENCY NOT SPECIFIED
     Route: 065
  5. WARFARIN SODIUM [Concomitant]
     Route: 065
  6. OMEPRAZOLE [Concomitant]
  7. FUROSEMIDE [Concomitant]
     Route: 065
  8. LATANOPROST [Concomitant]
     Dosage: ONE DROP DAILY IN EACH EYE
     Route: 047
  9. SEREVENT [Concomitant]
     Route: 055
  10. ALENDRONATE SODIUM [Concomitant]
     Route: 065
  11. FLIXOTIDE [Concomitant]
     Route: 055

REACTIONS (4)
  - ANAEMIA [None]
  - BRONCHIAL CARCINOMA [None]
  - MULTIPLE MYELOMA [None]
  - PNEUMONIA [None]
